FAERS Safety Report 6275333-7 (Version None)
Quarter: 2009Q3

REPORT INFORMATION
  Report Type: 
  Country: None (occurrence: None)
  Receive Date: 20090721
  Receipt Date: 20090710
  Transmission Date: 20100115
  Serious: Yes (Other)
  Sender: FDA-Public Use
  Company Number: B0583358A

PATIENT
  Sex: Female

DRUGS (5)
  1. ARIXTRA [Suspect]
     Route: 042
     Dates: start: 20080404, end: 20080417
  2. SOLUPRED [Suspect]
     Dosage: 50MG PER DAY
     Route: 048
     Dates: start: 20070701
  3. STILNOX [Suspect]
     Dosage: 5MG PER DAY
     Route: 048
  4. DIGITALINE NATIVELLE [Concomitant]
     Indication: ATRIAL FIBRILLATION
     Dosage: .25MG FIVE TIMES PER WEEK
     Route: 048
  5. CORDARONE [Concomitant]
     Indication: ATRIAL FIBRILLATION
     Dosage: 200MG FIVE TIMES PER WEEK
     Route: 048

REACTIONS (3)
  - INCORRECT ROUTE OF DRUG ADMINISTRATION [None]
  - MYASTHENIA GRAVIS [None]
  - OFF LABEL USE [None]
